APPROVED DRUG PRODUCT: CYCLAPEN-W
Active Ingredient: CYCLACILLIN
Strength: 500MG
Dosage Form/Route: TABLET;ORAL
Application: N050509 | Product #002
Applicant: WYETH AYERST LABORATORIES
Approved: Approved Prior to Jan 1, 1982 | RLD: No | RS: No | Type: DISCN